FAERS Safety Report 7079537-5 (Version None)
Quarter: 2010Q4

REPORT INFORMATION
  Report Type: 
  Country: None (occurrence: None)
  Receive Date: 20101102
  Receipt Date: 20101020
  Transmission Date: 20110411
  Serious: No
  Sender: FDA-Public Use
  Company Number: US-ELI_LILLY_AND_COMPANY-US201010004774

PATIENT
  Age: 55 Year
  Sex: Male

DRUGS (7)
  1. ZYPREXA [Suspect]
     Indication: PSYCHOTIC DISORDER
     Dosage: 10 MG, DAILY (1/D)
     Dates: start: 20080401, end: 20090601
  2. ZYPREXA [Suspect]
     Dosage: 12.5 MG, DAILY (1/D)
     Dates: start: 20090601
  3. ZOCOR [Concomitant]
  4. CALCIUM [Concomitant]
  5. LORATADINE [Concomitant]
  6. NEXIUM [Concomitant]
  7. NASONEX [Concomitant]

REACTIONS (2)
  - LEUKOPENIA [None]
  - PSYCHOTIC BEHAVIOUR [None]
